FAERS Safety Report 15326338 (Version 1)
Quarter: 2018Q3

REPORT INFORMATION
  Report Type: Spontaneous
  Country: US (occurrence: US)
  Receive Date: 20180828
  Receipt Date: 20180828
  Transmission Date: 20181010
  Serious: No
  Sender: FDA-Public Use
  Company Number: US-SA-2018SA238714

PATIENT
  Age: 14 Year
  Sex: Male

DRUGS (1)
  1. LUMIZYME [Suspect]
     Active Substance: ALGLUCOSIDASE ALFA
     Dosage: 2150 MG, QW
     Route: 041
     Dates: start: 201603, end: 20180813

REACTIONS (5)
  - Myalgia [Unknown]
  - Musculoskeletal stiffness [Unknown]
  - Pyrexia [Unknown]
  - Ill-defined disorder [Unknown]
  - Urticaria [Unknown]

NARRATIVE: CASE EVENT DATE: 201808
